FAERS Safety Report 6377385-2 (Version None)
Quarter: 2009Q3

REPORT INFORMATION
  Report Type: 
  Country: None (occurrence: None)
  Receive Date: 20090925
  Receipt Date: 20090918
  Transmission Date: 20100115
  Serious: No
  Sender: FDA-Public Use
  Company Number: US-BAYER-200914505BCC

PATIENT
  Age: 76 Year
  Sex: Female
  Weight: 73 kg

DRUGS (2)
  1. ALEVE [Suspect]
     Indication: BACK PAIN
     Dosage: TOTAL DAILY DOSE: 440 MG  UNIT DOSE: 220 MG
     Route: 048
     Dates: start: 20090913, end: 20090917
  2. ATENOLOL [Concomitant]
     Indication: HYPERTENSION
     Route: 065

REACTIONS (1)
  - HYPERTENSION [None]
